FAERS Safety Report 7540665-9 (Version None)
Quarter: 2011Q2

REPORT INFORMATION
  Report Type: 
  Country: None (occurrence: None)
  Receive Date: 20110610
  Receipt Date: 20110530
  Transmission Date: 20111010
  Serious: Yes (Hospitalization)
  Sender: FDA-Public Use
  Company Number: PHHY2011CH47430

PATIENT
  Age: 67 Year
  Sex: Male

DRUGS (8)
  1. AMIODARONE HCL [Suspect]
     Route: 042
     Dates: start: 20100710, end: 20100720
  2. FLUCONAZOLE [Interacting]
     Dosage: 400 MG/DAY
     Route: 042
     Dates: start: 20100715, end: 20100720
  3. IBUTILIDE [Concomitant]
     Dosage: UNK
     Dates: start: 20100710
  4. ATORVASTATIN [Interacting]
     Dosage: 80 MG, QD
     Dates: end: 20100716
  5. ATORVASTATIN [Interacting]
     Dosage: 40 MG, UNK
     Route: 048
  6. DOBUTAMINE HYDROCHLORIDE [Concomitant]
     Dosage: UNK
     Dates: start: 20100710
  7. ALLOPURINOL [Concomitant]
     Dosage: 100 MG, QD
  8. SIMVASTATIN [Concomitant]

REACTIONS (25)
  - MUSCULAR WEAKNESS [None]
  - DELIRIUM [None]
  - COMA [None]
  - RHABDOMYOLYSIS [None]
  - CANDIDA OSTEOMYELITIS [None]
  - HYPERPHOSPHATAEMIA [None]
  - PAIN IN EXTREMITY [None]
  - FATIGUE [None]
  - MYOGLOBINURIA [None]
  - ATRIAL FIBRILLATION [None]
  - BLOOD GLUCOSE ABNORMAL [None]
  - POLYURIA [None]
  - HYPOCALCAEMIA [None]
  - TACHYPNOEA [None]
  - DRUG INTERACTION [None]
  - HYPOTHYROIDISM [None]
  - NEPHROPATHY [None]
  - GOUT [None]
  - ASTHENIA [None]
  - STREPTOCOCCAL INFECTION [None]
  - PYREXIA [None]
  - LARGE INTESTINE PERFORATION [None]
  - PULMONARY OEDEMA [None]
  - MYOPATHY [None]
  - SYSTEMIC INFLAMMATORY RESPONSE SYNDROME [None]
